FAERS Safety Report 9511338 (Version 1)
Quarter: 2013Q1

REPORT INFORMATION
  Report Type: Spontaneous
  Country: US (occurrence: None)
  Receive Date: 20130305
  Receipt Date: 20130305
  Transmission Date: 20140127
  Serious: Yes (Hospitalization)
  Sender: FDA-Public Use
  Company Number: 163-21880-11101636

PATIENT
  Age: 81 Year
  Sex: Female

DRUGS (4)
  1. REVLIMID (LENALIDOMIDE) (25 MILLIGRAM, CAPSULES) [Suspect]
     Indication: PLASMA CELL MYELOMA
     Dosage: 25 MG, DAYS 1-14, PO
     Dates: start: 20110808
  2. ADVAIR(SERETIDE MITE)(INHALANT) [Concomitant]
  3. VELCADE(UNKNOWN) [Concomitant]
  4. DECADRON(DEXAMETHASONE)(UNKNOWN) [Concomitant]

REACTIONS (1)
  - Herpes zoster [None]
